FAERS Safety Report 25640577 (Version 1)
Quarter: 2025Q3

REPORT INFORMATION
  Report Type: Spontaneous
  Country: US (occurrence: None)
  Receive Date: 20250801
  Receipt Date: 20250801
  Transmission Date: 20251021
  Serious: Yes (unspecified)
  Sender: FDA-CTU
  Company Number: None

PATIENT
  Age: 41 Year
  Sex: Female
  Weight: 68.4 kg

DRUGS (15)
  1. QBREXZA [Suspect]
     Active Substance: GLYCOPYRRONIUM TOSYLATE
     Indication: Hyperhidrosis
     Dosage: OTHER QUANTITY : 1 CLOTH?FREQUENCY : DAILY?
     Route: 061
     Dates: start: 20250627, end: 20250801
  2. LISDEXAMFETAMINE [Concomitant]
     Active Substance: LISDEXAMFETAMINE
  3. FLUCONAZOLE [Concomitant]
     Active Substance: FLUCONAZOLE
  4. TRAZODONE [Concomitant]
     Active Substance: TRAZODONE HYDROCHLORIDE
  5. BUPROPION [Concomitant]
     Active Substance: BUPROPION
  6. CLONAZEPAM [Concomitant]
     Active Substance: CLONAZEPAM
  7. MIRALAX [Concomitant]
     Active Substance: POLYETHYLENE GLYCOL 3350
  8. MAGNESIUM CITRATE [Concomitant]
     Active Substance: MAGNESIUM CITRATE
  9. ALLEGRA [Concomitant]
     Active Substance: FEXOFENADINE HYDROCHLORIDE
  10. FLONASE [Concomitant]
     Active Substance: FLUTICASONE PROPIONATE
  11. PROBIOTICS NOS [Concomitant]
     Active Substance: PROBIOTICS NOS
  12. DEMANNOSE [Concomitant]
     Active Substance: DEMANNOSE
  13. FISH OIL [Concomitant]
     Active Substance: FISH OIL
  14. PRASTERONE [Concomitant]
     Active Substance: PRASTERONE
  15. VITAMIN B COMPLEX [Concomitant]
     Active Substance: CYANOCOBALAMIN\DEXPANTHENOL\NIACINAMIDE\PYRIDOXINE HYDROCHLORIDE\RIBOFLAVIN 5^-PHOSPHATE SODIUM\THIA

REACTIONS (3)
  - Urinary retention [None]
  - Bladder pain [None]
  - Urinary retention [None]

NARRATIVE: CASE EVENT DATE: 20250801
